FAERS Safety Report 4566479-X (Version None)
Quarter: 2005Q1

REPORT INFORMATION
  Report Type: 
  Country: None (occurrence: None)
  Receive Date: 20050128
  Receipt Date: 19941103
  Transmission Date: 20050727
  Serious: Yes (Life-Threatening)
  Sender: FDA-Public Use
  Company Number: KII-1994-0014892

PATIENT

DRUGS (1)
  1. THEOPHYLLINE [Suspect]

REACTIONS (2)
  - HAEMORRHAGE [None]
  - MEDICATION ERROR [None]
